FAERS Safety Report 11803433 (Version 2)
Quarter: 2015Q4

REPORT INFORMATION
  Report Type: Spontaneous
  Country: IT (occurrence: IT)
  Receive Date: 20151204
  Receipt Date: 20151215
  Transmission Date: 20160305
  Serious: Yes (Death, Hospitalization)
  Sender: FDA-Public Use
  Company Number: IT-KADMON PHARMACEUTICALS, LLC-KAD201512-004195

PATIENT
  Age: 61 Year
  Sex: Male

DRUGS (5)
  1. EXVIERA [Suspect]
     Active Substance: DASABUVIR
     Indication: HEPATITIS C
     Route: 048
     Dates: start: 20151023, end: 20151118
  2. LEVOSULPIRIDE [Concomitant]
     Active Substance: LEVOSULPIRIDE
  3. VIEKIRAX [Suspect]
     Active Substance: OMBITASVIR\PARITAPREVIR\RITONAVIR
     Indication: HEPATITIS C
     Route: 048
     Dates: start: 20151023, end: 20151118
  4. RIBAVIRIN. [Suspect]
     Active Substance: RIBAVIRIN
     Indication: HEPATITIS C
     Dates: start: 20151023, end: 20151116
  5. METOCLOPRAMIDE. [Concomitant]
     Active Substance: METOCLOPRAMIDE

REACTIONS (8)
  - Decreased appetite [Fatal]
  - Hypokalaemia [Fatal]
  - Dyspepsia [Fatal]
  - Vomiting [Fatal]
  - Sepsis [Fatal]
  - Hepatic failure [Fatal]
  - Hyponatraemia [Fatal]
  - Nausea [Fatal]

NARRATIVE: CASE EVENT DATE: 20151114
